FAERS Safety Report 6305652-7 (Version None)
Quarter: 2009Q3

REPORT INFORMATION
  Report Type: 
  Country: None (occurrence: None)
  Receive Date: 20090807
  Receipt Date: 20090729
  Transmission Date: 20100115
  Serious: Yes (Hospitalization, Other)
  Sender: FDA-Public Use
  Company Number: ADE2009-0752

PATIENT
  Age: 48 Year
  Sex: Female

DRUGS (2)
  1. LAMOTRIGINE [Suspect]
     Indication: EPILEPSY
     Dosage: 25-50MG, DAILY;
  2. CARBAMAZEPINE [Concomitant]

REACTIONS (12)
  - ALANINE AMINOTRANSFERASE INCREASED [None]
  - BLOOD SODIUM DECREASED [None]
  - DISORIENTATION [None]
  - FACE OEDEMA [None]
  - HYPOTENSION [None]
  - MENINGISM [None]
  - MENINGITIS [None]
  - OEDEMA PERIPHERAL [None]
  - PHOTOPHOBIA [None]
  - PLATELET COUNT DECREASED [None]
  - RASH MACULAR [None]
  - VIRAL INFECTION [None]
